FAERS Safety Report 25996597 (Version 1)
Quarter: 2025Q4

REPORT INFORMATION
  Report Type: Report from Study
  Country: None (occurrence: JP)
  Receive Date: 20251104
  Receipt Date: 20251104
  Transmission Date: 20260118
  Serious: Yes (Hospitalization)
  Sender: ALNYLAM PHARMACEUTICALS
  Company Number: JP-ALNYLAM PHARMACEUTICALS, INC.-ALN-2025-006753

PATIENT
  Age: 53 Year
  Weight: 84 kg

DRUGS (16)
  1. AMVUTTRA [Suspect]
     Active Substance: VUTRISIRAN
     Indication: Hereditary neuropathic amyloidosis
     Dosage: 25 MG, ONCE EVERY 3 MONTHS
  2. AMVUTTRA [Suspect]
     Active Substance: VUTRISIRAN
     Dosage: 25 MG, ONCE EVERY 3 MONTHS
  3. VITAMINS [Concomitant]
     Active Substance: VITAMINS
     Indication: Vitamin supplementation
     Dosage: 2 GRAM
  4. LYRICA [Concomitant]
     Active Substance: PREGABALIN
     Indication: Hereditary neuropathic amyloidosis
     Dosage: 450 MILLIGRAM
  5. HERBALS [Concomitant]
     Active Substance: HERBALS
     Indication: Hereditary neuropathic amyloidosis
     Dosage: 5 GRAM
  6. CILOSTAZOL [Concomitant]
     Active Substance: CILOSTAZOL
     Indication: Hereditary neuropathic amyloidosis
     Dosage: 200 MILLIGRAM
  7. MIDODRINE HYDROCHLORIDE [Concomitant]
     Active Substance: MIDODRINE HYDROCHLORIDE
     Indication: Hereditary neuropathic amyloidosis
     Dosage: 4 MILLIGRAM
  8. SENNOSIDES [Concomitant]
     Active Substance: SENNOSIDES
     Indication: Hereditary neuropathic amyloidosis
     Dosage: 24 MILLIGRAM
  9. LUNESTA [Concomitant]
     Active Substance: ESZOPICLONE
     Indication: Insomnia
     Dosage: 3 MILLIGRAM
  10. DAYVIGO [Concomitant]
     Active Substance: LEMBOREXANT
     Indication: Insomnia
     Dosage: 5 MILLIGRAM
  11. CALONAL [Concomitant]
     Active Substance: ACETAMINOPHEN
     Indication: Symptomatic treatment
     Dosage: 500 MILLIGRAM
  12. Azunol [Concomitant]
     Indication: Decubitus ulcer
     Dosage: SEVERAL TIMES
  13. METHYLCOBALAMIN [Concomitant]
     Active Substance: METHYLCOBALAMIN
     Indication: Hereditary neuropathic amyloidosis
     Dosage: 1000 MICROGRAM
  14. FOLIC ACID [Concomitant]
     Active Substance: FOLIC ACID
     Indication: Folate deficiency
     Dosage: 10 MILLIGRAM
  15. ALBUMIN TANNATE [Concomitant]
     Active Substance: ALBUMIN TANNATE
     Indication: Hereditary neuropathic amyloidosis
     Dosage: 3 GRAM
  16. BIFIDOBACTERIUM SPP. [Concomitant]
     Active Substance: BIFIDOBACTERIUM SPP.
     Indication: Hereditary neuropathic amyloidosis
     Dosage: 3 GRAM

REACTIONS (1)
  - Subarachnoid haemorrhage [Unknown]
